FAERS Safety Report 18478620 (Version 2)
Quarter: 2025Q2

REPORT INFORMATION
  Report Type: Spontaneous
  Country: US (occurrence: US)
  Receive Date: 20201109
  Receipt Date: 20250529
  Transmission Date: 20250716
  Serious: Yes (Life-Threatening, Hospitalization, Other)
  Sender: AUROBINDO
  Company Number: US-MLMSERVICE-20201021-2542286-1

PATIENT
  Age: 70 Year
  Sex: Female

DRUGS (5)
  1. FAMOTIDINE [Suspect]
     Active Substance: FAMOTIDINE
     Indication: Product used for unknown indication
     Route: 065
  2. ALLOPURINOL [Suspect]
     Active Substance: ALLOPURINOL
     Indication: Product used for unknown indication
     Route: 065
  3. THEOPHYLLINE [Suspect]
     Active Substance: THEOPHYLLINE
     Indication: Asthma
     Route: 065
  4. ALBUTEROL [Concomitant]
     Active Substance: ALBUTEROL
     Indication: Product used for unknown indication
     Route: 065
  5. HYDROCHLOROTHIAZIDE\TRIAMTERENE [Concomitant]
     Active Substance: HYDROCHLOROTHIAZIDE\TRIAMTERENE
     Indication: Product used for unknown indication
     Route: 065

REACTIONS (5)
  - Myocardial ischaemia [Recovered/Resolved]
  - Tremor [Recovered/Resolved]
  - Hallucination, visual [Recovered/Resolved]
  - Ventricular tachycardia [Recovered/Resolved]
  - Toxicity to various agents [Recovered/Resolved]
